FAERS Safety Report 10551376 (Version 1)
Quarter: 2014Q4

REPORT INFORMATION
  Report Type: Spontaneous
  Country: FR (occurrence: None)
  Receive Date: 20141027
  Receipt Date: 20141027
  Transmission Date: 20150529
  Serious: Yes (Death, Other)
  Sender: FDA-Public Use
  Company Number: 2595657

PATIENT
  Age: 15 Day
  Sex: Male

DRUGS (5)
  1. LEVOMEPROMAZINE HYDROCHLORIDE [Concomitant]
     Active Substance: LEVOMEPROMAZINE HYDROCHLORIDE
  2. DEXMEDETOMIDINE HYDROCHLORIDE. [Suspect]
     Active Substance: DEXMEDETOMIDINE HYDROCHLORIDE
     Indication: SEDATION
     Dates: start: 20140402, end: 20140403
  3. SUFENTANYL [Concomitant]
     Active Substance: SUFENTANIL
  4. MIDAZOLAM [Concomitant]
     Active Substance: MIDAZOLAM\MIDAZOLAM HYDROCHLORIDE
  5. LEVOPROMAZINE [Concomitant]
     Active Substance: LEVOMEPROMAZINE

REACTIONS (9)
  - Hypotension [None]
  - Bradycardia [None]
  - Off label use [None]
  - Left ventricular hypertrophy [None]
  - Overdose [None]
  - Multi-organ failure [None]
  - Anuria [None]
  - Diastolic dysfunction [None]
  - Cardiac hypertrophy [None]

NARRATIVE: CASE EVENT DATE: 20140402
